FAERS Safety Report 9329709 (Version 1)
Quarter: 2013Q2

REPORT INFORMATION
  Report Type: Spontaneous
  Country: US (occurrence: US)
  Receive Date: 20130604
  Receipt Date: 20130604
  Transmission Date: 20140414
  Serious: No
  Sender: FDA-Public Use
  Company Number: US-SANOFI-AVENTIS-2013SA001506

PATIENT
  Age: 77 Year
  Sex: Female

DRUGS (3)
  1. LANTUS SOLOSTAR [Suspect]
     Dosage: DOSE:24 UNIT(S)
     Route: 051
     Dates: start: 20121220
  2. SOLOSTAR [Suspect]
     Dates: start: 20121220
  3. PREDNISONE [Suspect]
     Indication: SYSTEMIC LUPUS ERYTHEMATOSUS
     Dates: start: 20121127

REACTIONS (3)
  - Blood glucose increased [Not Recovered/Not Resolved]
  - Incorrect storage of drug [Unknown]
  - Dry eye [Not Recovered/Not Resolved]
